FAERS Safety Report 8080391-3 (Version None)
Quarter: 2012Q1

REPORT INFORMATION
  Report Type: 
  Country: None (occurrence: None)
  Receive Date: 20120130
  Receipt Date: 20120130
  Transmission Date: 20120608
  Serious: Yes (Hospitalization, Other)
  Sender: FDA-Public Use
  Company Number: US-JNJFOC-20090402342

PATIENT
  Sex: Female
  Weight: 47.4 kg

DRUGS (18)
  1. REMICADE [Suspect]
     Route: 042
     Dates: start: 20060515
  2. REMICADE [Suspect]
     Route: 042
     Dates: start: 20090303
  3. HUMIRA [Concomitant]
     Dosage: LAST DOSE WAS CLOSE TO 28-APR-2008
  4. POLYSACCHARIDE-IRON COMPLEX [Concomitant]
  5. REMICADE [Suspect]
     Route: 042
     Dates: start: 20080527
  6. REMICADE [Suspect]
     Route: 042
     Dates: start: 20080820
  7. REMICADE [Suspect]
     Indication: CROHN'S DISEASE
     Dosage: RECEIVED INDUCTION DOSING AT WEEK 0, 2, AND 6 AND THEN MAINTENANCE OF EVERY 8 WEEKS
     Route: 042
     Dates: start: 20080515
  8. PREDNISONE TAB [Concomitant]
  9. ANTIHISTAMINES [Concomitant]
     Indication: PREMEDICATION
  10. ACETAMINOPHEN [Concomitant]
     Indication: PREMEDICATION
  11. METRONIDAZOLE [Concomitant]
  12. CIPROFLOXACIN [Concomitant]
  13. REMICADE [Suspect]
     Route: 042
     Dates: start: 20070711
  14. ANTIBIOTICS [Concomitant]
     Indication: CROHN'S DISEASE
  15. HUMIRA [Concomitant]
     Dosage: TAKEN AT BASELINE VISIT 1. RECEIVED A DOSE ON 21-APR-2008
     Dates: start: 20070921
  16. PERIACTIN [Concomitant]
  17. REMICADE [Suspect]
     Route: 042
     Dates: start: 20080624
  18. ANTIBIOTICS [Concomitant]
     Indication: INFLAMMATORY BOWEL DISEASE

REACTIONS (4)
  - ABSCESS INTESTINAL [None]
  - MELANOCYTIC NAEVUS [None]
  - SMALL INTESTINAL OBSTRUCTION [None]
  - LARGE INTESTINE PERFORATION [None]
